FAERS Safety Report 6575880-4 (Version None)
Quarter: 2010Q1

REPORT INFORMATION
  Report Type: 
  Country: None (occurrence: None)
  Receive Date: 20100209
  Receipt Date: 20100201
  Transmission Date: 20100710
  Serious: Yes (Death)
  Sender: FDA-Public Use
  Company Number: US-PFIZER INC-2009266202

PATIENT
  Sex: Female
  Weight: 44.898 kg

DRUGS (4)
  1. REVATIO [Suspect]
     Indication: PULMONARY HYPERTENSION
     Dosage: 10 MG, 3X/DAY
     Dates: start: 20090629
  2. REVATIO [Suspect]
     Dosage: 20 MG, 3X/DAY
  3. TRACLEER [Concomitant]
     Dosage: FREQUENCY: 2X/DAY,
     Dates: start: 20080208
  4. ILOPROST [Concomitant]
     Dosage: 2.5 UG, UNK
     Dates: start: 20080611

REACTIONS (1)
  - DEATH [None]
